FAERS Safety Report 19019156 (Version 1)
Quarter: 2021Q1

REPORT INFORMATION
  Report Type: Spontaneous
  Country: DE (occurrence: DE)
  Receive Date: 20210316
  Receipt Date: 20210316
  Transmission Date: 20210420
  Serious: Yes (Other)
  Sender: FDA-Public Use
  Company Number: DE-SA-2021SA075246

PATIENT
  Age: 43 Year
  Sex: Male
  Weight: 123 kg

DRUGS (6)
  1. TOUJEO [Suspect]
     Active Substance: INSULIN GLARGINE
     Dosage: 80 IU, UNK
     Dates: start: 201911
  2. METFORMIN [Concomitant]
     Active Substance: METFORMIN HYDROCHLORIDE
     Dosage: 1000 MG, 1?0?1
  3. TOUJEO [Suspect]
     Active Substance: INSULIN GLARGINE
     Dosage: 12 IU, UNK
  4. TOUJEO [Suspect]
     Active Substance: INSULIN GLARGINE
     Dosage: 46 IU, UNK
     Dates: start: 201909
  5. TOUJEO [Suspect]
     Active Substance: INSULIN GLARGINE
     Dosage: 42 IU, BID
     Dates: start: 202003
  6. TOUJEO [Suspect]
     Active Substance: INSULIN GLARGINE
     Dosage: 22 IU, UNK
     Dates: start: 201907

REACTIONS (9)
  - Pseudohypoglycaemia [Unknown]
  - Body temperature decreased [Unknown]
  - Retinal degeneration [Unknown]
  - Central nervous system lesion [Unknown]
  - Blood glucose increased [Unknown]
  - Tremor [Unknown]
  - Multiple sclerosis [Unknown]
  - Hypoglycaemia [Unknown]
  - Inappropriate schedule of product administration [Unknown]

NARRATIVE: CASE EVENT DATE: 201909
